FAERS Safety Report 8241077-5 (Version None)
Quarter: 2012Q1

REPORT INFORMATION
  Report Type: 
  Country: None (occurrence: None)
  Receive Date: 20120328
  Receipt Date: 20110218
  Transmission Date: 20120608
  Serious: Yes (Other)
  Sender: FDA-Public Use
  Company Number: US-GLAXOSMITHKLINE-A0915382A

PATIENT
  Age: 51 Year
  Sex: Female
  Weight: 97.5 kg

DRUGS (4)
  1. LASIX [Suspect]
  2. SPIRONOLACTONE [Concomitant]
     Dosage: 100MG PER DAY
  3. COUMADIN [Concomitant]
  4. FLOLAN [Suspect]
     Indication: PULMONARY HYPERTENSION
     Route: 042
     Dates: start: 20081217

REACTIONS (3)
  - DERMATITIS [None]
  - PNEUMONIA [None]
  - PRURITUS [None]
